FAERS Safety Report 4855450-6 (Version None)
Quarter: 2005Q4

REPORT INFORMATION
  Report Type: 
  Country: None (occurrence: None)
  Receive Date: 20051214
  Receipt Date: 20051122
  Transmission Date: 20060501
  Serious: Yes (Hospitalization)
  Sender: FDA-Public Use
  Company Number: 2005BI021236

PATIENT
  Age: 46 Year
  Sex: Female

DRUGS (2)
  1. AVONEX [Suspect]
     Indication: MULTIPLE SCLEROSIS
     Dosage: 30 UG;QW;IM
     Route: 030
     Dates: start: 20000301
  2. AVONEX [Suspect]
     Indication: MULTIPLE SCLEROSIS
     Dosage: 30 UG;QW;IM
     Route: 030

REACTIONS (8)
  - ACCIDENTAL OVERDOSE [None]
  - AMNESIA [None]
  - CONTUSION [None]
  - FALL [None]
  - HAEMORRHAGE [None]
  - HYPOAESTHESIA [None]
  - JOINT INJURY [None]
  - MUSCLE SPASMS [None]
